FAERS Safety Report 5878818-8 (Version None)
Quarter: 2008Q3

REPORT INFORMATION
  Report Type: 
  Country: None (occurrence: None)
  Receive Date: 20080910
  Receipt Date: 20080910
  Transmission Date: 20090109
  Serious: Yes (Other)
  Sender: FDA-Public Use
  Company Number: None

PATIENT
  Age: 3 Year
  Sex: Female
  Weight: 11.3399 kg

DRUGS (1)
  1. MIRALAX [Suspect]
     Indication: CONSTIPATION
     Dosage: 17 MG QD PO
     Route: 048
     Dates: start: 20060701, end: 20080307

REACTIONS (23)
  - ABDOMINAL DISTENSION [None]
  - ABDOMINAL PAIN [None]
  - ABNORMAL BEHAVIOUR [None]
  - ABNORMAL FAECES [None]
  - ANORECTAL DISORDER [None]
  - BLISTER [None]
  - CONSTIPATION [None]
  - DARK CIRCLES UNDER EYES [None]
  - DIARRHOEA [None]
  - DRUG DEPENDENCE [None]
  - ENCOPRESIS [None]
  - FAECAL INCONTINENCE [None]
  - FLATULENCE [None]
  - GAIT DISTURBANCE [None]
  - GASTROINTESTINAL DISORDER [None]
  - GASTROINTESTINAL INJURY [None]
  - MALAISE [None]
  - PAIN [None]
  - PALLOR [None]
  - PERSONALITY CHANGE [None]
  - STUBBORNNESS [None]
  - URINARY INCONTINENCE [None]
  - VEIN DISCOLOURATION [None]
